FAERS Safety Report 8035898-1 (Version None)
Quarter: 2012Q1

REPORT INFORMATION
  Report Type: 
  Country: None (occurrence: None)
  Receive Date: 20120111
  Receipt Date: 20120111
  Transmission Date: 20120608
  Serious: Yes (Life-Threatening)
  Sender: FDA-Public Use
  Company Number: None

PATIENT
  Age: 21 Year
  Sex: Female
  Weight: 104.32 kg

DRUGS (1)
  1. PARAGARD T 380A [Suspect]
     Indication: CONTRACEPTION
     Dosage: ONE IUD INSERTION
     Route: 015

REACTIONS (2)
  - MEDICAL DEVICE COMPLICATION [None]
  - MENORRHAGIA [None]
